FAERS Safety Report 21503009 (Version 1)
Quarter: 2022Q4

REPORT INFORMATION
  Report Type: Spontaneous
  Country: JP (occurrence: None)
  Receive Date: 20221025
  Receipt Date: 20221025
  Transmission Date: 20230113
  Serious: Yes (Hospitalization)
  Sender: FDA-Public Use
  Company Number: JP-Orion Corporation ORION PHARMA-ENTC2022-0208

PATIENT

DRUGS (1)
  1. STALEVO [Suspect]
     Active Substance: CARBIDOPA\ENTACAPONE\LEVODOPA
     Indication: Product used for unknown indication
     Dosage: LEVODOPA 100MG, CARBIDOPA HYDRATE 10.8MG (CARBIDOPA 10MG), ENTACAPONE 100MG
     Route: 048

REACTIONS (4)
  - Aspiration [Unknown]
  - Angina pectoris [Unknown]
  - Dehydration [Unknown]
  - Feeding disorder [Unknown]
